FAERS Safety Report 8462530 (Version 2)
Quarter: 2012Q4

REPORT INFORMATION
  Report Type: 
  Country: US (occurrence: US)
  Receive Date: 20120316
  Receipt Date: 20121023
  Transmission Date: 20130627
  Serious: Yes (Hospitalization)
  Sender: FDA-Public Use
  Company Number: US-BAYER-2012-023985

PATIENT
  Age: 37 Year
  Sex: Female
  Weight: 77.37 kg

DRUGS (5)
  1. YAZ [Suspect]
     Dosage: UNK
     Dates: start: 20090227, end: 20100928
  2. YASMIN [Suspect]
     Dosage: UNK
     Dates: start: 20090227, end: 20100928
  3. OCELLA [Suspect]
     Dosage: UNK
     Dates: start: 20090227, end: 20100928
  4. FAMCICLOVIR [Concomitant]
     Indication: ANTIVIRAL TREATMENT
     Dosage: 500 mg, UNK
  5. NASONEX [Concomitant]
     Indication: RHINITIS ALLERGIC

REACTIONS (7)
  - Pulmonary embolism [Recovering/Resolving]
  - Injury [Recovering/Resolving]
  - Pain [Recovering/Resolving]
  - Emotional distress [None]
  - General physical health deterioration [Recovering/Resolving]
  - Anxiety [None]
  - Pain [None]
